FAERS Safety Report 13530819 (Version 1)
Quarter: 2017Q2

REPORT INFORMATION
  Report Type: Spontaneous
  Country: US (occurrence: US)
  Receive Date: 20170510
  Receipt Date: 20170510
  Transmission Date: 20170830
  Serious: No
  Sender: FDA-Public Use
  Company Number: US-TEVA-757247USA

PATIENT
  Sex: Female

DRUGS (12)
  1. CELEBREX [Suspect]
     Active Substance: CELECOXIB
     Indication: PAIN IN EXTREMITY
  2. ACYCLOVIR. [Concomitant]
     Active Substance: ACYCLOVIR
     Indication: HERPES ZOSTER
     Dosage: FIVE TIMES A DAY FOR SEVEN DAYS FOR FLARE UP
     Route: 048
  3. CELECOXIB. [Suspect]
     Active Substance: CELECOXIB
     Indication: NECK PAIN
     Route: 065
     Dates: start: 2017
  4. VALSARTAN. [Concomitant]
     Active Substance: VALSARTAN
     Indication: HYPERTENSION
     Dosage: 160 2.5 MG
     Route: 065
  5. FLUOXETINE [Concomitant]
     Active Substance: FLUOXETINE HYDROCHLORIDE
     Dosage: 60 MILLIGRAM DAILY; TWO IN THE MORNING AND ONE IN THE EVENING
     Route: 048
  6. BUPROPION XL [Concomitant]
     Active Substance: BUPROPION
     Indication: SUPPLEMENTATION THERAPY
     Dosage: 300 MILLIGRAM DAILY;
     Route: 065
  7. CELECOXIB. [Suspect]
     Active Substance: CELECOXIB
     Indication: MOVEMENT DISORDER
  8. TYLENOL WITH CODEINE [Concomitant]
     Active Substance: ACETAMINOPHEN\CODEINE PHOSPHATE
     Indication: MIGRAINE
     Route: 065
  9. CELECOXIB. [Suspect]
     Active Substance: CELECOXIB
     Indication: PAIN IN EXTREMITY
  10. CELEBREX [Suspect]
     Active Substance: CELECOXIB
     Indication: NECK PAIN
     Dosage: 400 MILLIGRAM DAILY;
     Route: 048
     Dates: start: 2012
  11. CELEBREX [Suspect]
     Active Substance: CELECOXIB
     Indication: MOVEMENT DISORDER
  12. DIAZEPAM. [Concomitant]
     Active Substance: DIAZEPAM
     Route: 048

REACTIONS (2)
  - Pain [Unknown]
  - Adverse event [Unknown]

NARRATIVE: CASE EVENT DATE: 2017
